FAERS Safety Report 6814157-6 (Version None)
Quarter: 2010Q3

REPORT INFORMATION
  Report Type: 
  Country: None (occurrence: None)
  Receive Date: 20100702
  Receipt Date: 20100622
  Transmission Date: 20110219
  Serious: Yes (Hospitalization, Other)
  Sender: FDA-Public Use
  Company Number: US-JNJFOC-20061100888

PATIENT
  Sex: Female

DRUGS (7)
  1. RISPERDAL [Suspect]
     Indication: PANIC ATTACK
  2. RISPERDAL [Suspect]
     Indication: ANXIETY
  3. RISPERDAL [Suspect]
     Indication: DEPRESSION
  4. RISPERDAL [Suspect]
     Indication: BIPOLAR DISORDER
  5. SEROQUEL [Suspect]
     Indication: PANIC DISORDER
  6. SEROQUEL [Suspect]
     Indication: ANXIETY
  7. SEROQUEL [Suspect]
     Indication: MAJOR DEPRESSION

REACTIONS (6)
  - BLOOD CHOLESTEROL INCREASED [None]
  - DIABETES MELLITUS [None]
  - DRUG INEFFECTIVE [None]
  - MULTIPLE SCLEROSIS [None]
  - TARDIVE DYSKINESIA [None]
  - VASCULAR GRAFT [None]
